FAERS Safety Report 7510976-1 (Version None)
Quarter: 2011Q2

REPORT INFORMATION
  Report Type: 
  Country: None (occurrence: None)
  Receive Date: 20110531
  Receipt Date: 20110524
  Transmission Date: 20111010
  Serious: No
  Sender: FDA-Public Use
  Company Number: US-PFIZER INC-2011098923

PATIENT
  Sex: Male

DRUGS (1)
  1. LIPITOR [Suspect]
     Dosage: 20 MG

REACTIONS (3)
  - MUSCULOSKELETAL PAIN [None]
  - PAIN IN EXTREMITY [None]
  - ARTHRALGIA [None]
